FAERS Safety Report 6829715-2 (Version None)
Quarter: 2010Q3

REPORT INFORMATION
  Report Type: 
  Country: None (occurrence: None)
  Receive Date: 20100709
  Receipt Date: 20070525
  Transmission Date: 20110219
  Serious: No
  Sender: FDA-Public Use
  Company Number: US-PFIZER INC-2007012050

PATIENT
  Sex: Female
  Weight: 47.63 kg

DRUGS (4)
  1. CHANTIX [Suspect]
     Indication: SMOKING CESSATION THERAPY
     Route: 048
     Dates: start: 20070129, end: 20070208
  2. NEXIUM [Concomitant]
     Indication: GASTROOESOPHAGEAL REFLUX DISEASE
  3. CYMBALTA [Concomitant]
  4. MIACALCIN [Concomitant]
     Indication: OSTEOPOROSIS

REACTIONS (10)
  - ABDOMINAL PAIN [None]
  - BLOOD URINE PRESENT [None]
  - DIARRHOEA [None]
  - DYSPEPSIA [None]
  - DYSURIA [None]
  - IRRITABLE BOWEL SYNDROME [None]
  - MUSCLE SPASMS [None]
  - NEPHROLITHIASIS [None]
  - PAIN [None]
  - URINARY TRACT INFECTION [None]
